FAERS Safety Report 7629343-5 (Version None)
Quarter: 2011Q3

REPORT INFORMATION
  Report Type: 
  Country: None (occurrence: None)
  Receive Date: 20110722
  Receipt Date: 20110713
  Transmission Date: 20111222
  Serious: Yes (Other)
  Sender: FDA-Public Use
  Company Number: CN-PFIZER INC-CN-WYE-G04706609

PATIENT
  Age: 29 Year
  Sex: Male
  Weight: 72 kg

DRUGS (3)
  1. MOROCTOCOG ALFA [Suspect]
     Indication: FACTOR VIII DEFICIENCY
     Dosage: 3549IU GIVEN FOR INITIAL RECOVERY
     Route: 040
     Dates: start: 20090408, end: 20090408
  2. ANTIHEMOPHILIC FACTOR (HUMAN) [Suspect]
     Dosage: 3549IU GIVEN FOR FINAL RECOVERY
     Route: 040
     Dates: start: 20091008, end: 20091008
  3. MOROCTOCOG ALFA [Suspect]
     Dosage: 9216IU GIVEN ON DEMAND
     Route: 040
     Dates: start: 20090416, end: 20090928

REACTIONS (1)
  - FACTOR VIII INHIBITION [None]
